FAERS Safety Report 21139811 (Version 1)
Quarter: 2022Q3

REPORT INFORMATION
  Report Type: Report from Study
  Country: US (occurrence: US)
  Receive Date: 20220728
  Receipt Date: 20220728
  Transmission Date: 20221027
  Serious: Yes (Other)
  Sender: FDA-Public Use
  Company Number: US-ABBVIE-22K-163-4481339-00

PATIENT
  Age: 36 Year
  Sex: Female

DRUGS (4)
  1. LOPINAVIR\RITONAVIR [Suspect]
     Active Substance: LOPINAVIR\RITONAVIR
     Indication: Product used for unknown indication
     Dosage: 637595 - MANUFACTURER CONTROL NUMBER
     Route: 048
     Dates: start: 20060619
  2. LAMIVUDINE [Concomitant]
     Active Substance: LAMIVUDINE
     Indication: Product used for unknown indication
     Route: 048
     Dates: start: 20070801
  3. ZIAGEN [Concomitant]
     Active Substance: ABACAVIR SULFATE
     Indication: Product used for unknown indication
     Route: 048
     Dates: start: 20090808
  4. VIREAD [Concomitant]
     Active Substance: TENOFOVIR DISOPROXIL FUMARATE
     Indication: Product used for unknown indication
     Route: 048
     Dates: end: 20090807

REACTIONS (5)
  - Chronic kidney disease [Unknown]
  - Hypertension [Unknown]
  - Anaemia of chronic disease [Unknown]
  - Maternal exposure during pregnancy [Unknown]
  - Live birth [Unknown]
